FAERS Safety Report 5104157-9 (Version None)
Quarter: 2006Q3

REPORT INFORMATION
  Report Type: 
  Country: None (occurrence: None)
  Receive Date: 20060911
  Receipt Date: 20060901
  Transmission Date: 20061208
  Serious: Yes (Hospitalization)
  Sender: FDA-Public Use
  Company Number: HQWYE311205SEP06

PATIENT
  Age: 59 Year
  Sex: Male

DRUGS (5)
  1. ENBREL [Suspect]
     Indication: RHEUMATOID ARTHRITIS
     Dosage: 50 MG 1X PER 1 WK SC
     Route: 058
     Dates: start: 20060516
  2. OSTELUC (ETODOLAC, CAPSULE) [Suspect]
     Dosage: 400 MG 1X PER 1 DAY ORAL
     Route: 048
  3. RHEUMATREX [Suspect]
  4. PREDNISOLONE [Concomitant]
  5. CLARITHROMYCIN [Concomitant]

REACTIONS (1)
  - PNEUMONIA [None]
